FAERS Safety Report 9245330 (Version 1)
Quarter: 2013Q1

REPORT INFORMATION
  Report Type: Spontaneous
  Country: US (occurrence: None)
  Receive Date: 20121130
  Receipt Date: 20121130
  Transmission Date: 20140127
  Serious: Yes (Disabling, Other)
  Sender: FDA-Public Use
  Company Number: 1111USA00632

PATIENT
  Age: 69 Year
  Sex: Female
  Weight: 63.5 kg

DRUGS (4)
  1. FOSAMAX [Suspect]
     Indication: OSTEOPOROSIS
     Route: 048
     Dates: start: 20040122, end: 20050228
  2. ACTONEL [Suspect]
     Indication: OSTEOPOROSIS
     Route: 048
     Dates: start: 20040122, end: 200903
  3. FOSAMAX [Suspect]
     Route: 048
     Dates: start: 20080624, end: 20081230
  4. EVISTA [Suspect]
     Indication: OSTEOPOROSIS
     Route: 048
     Dates: start: 20090916

REACTIONS (25)
  - Osteonecrosis of jaw [None]
  - Denture wearer [None]
  - Tooth extraction [None]
  - Tooth disorder [None]
  - Tooth abscess [None]
  - Tooth infection [None]
  - Osteomyelitis [None]
  - Actinomycosis [None]
  - Oral infection [None]
  - Impaired healing [None]
  - Pollakiuria [None]
  - Lipids increased [None]
  - Gouty arthritis [None]
  - Vitamin D deficiency [None]
  - Fungal skin infection [None]
  - Cerumen impaction [None]
  - Scoliosis [None]
  - Fall [None]
  - Muscle strain [None]
  - Osteoarthritis [None]
  - Pneumonia [None]
  - Bronchitis [None]
  - Haemorrhoids [None]
  - Diverticulum [None]
  - Anal fissure [None]
